FAERS Safety Report 9971794 (Version 1)
Quarter: 2014Q1

REPORT INFORMATION
  Report Type: Report from Study
  Country: US (occurrence: US)
  Receive Date: 20140306
  Receipt Date: 20140306
  Transmission Date: 20141002
  Serious: No
  Sender: FDA-Public Use
  Company Number: US-ABBVIE-13P-163-1153408-00

PATIENT
  Age: 63 Year
  Sex: Female

DRUGS (4)
  1. HUMIRA [Suspect]
     Indication: COLITIS ULCERATIVE
     Dosage: ONE TIME DOSE
     Route: 058
     Dates: start: 20130915, end: 20130915
  2. HUMIRA [Suspect]
     Dosage: ONE TIME DOSE
     Route: 058
     Dates: start: 20130929, end: 20130929
  3. METOPROLOL [Concomitant]
     Indication: HYPERTENSION
  4. LEVOTHYROXINE [Concomitant]
     Indication: THYROIDECTOMY

REACTIONS (1)
  - Injection site pain [Not Recovered/Not Resolved]
